FAERS Safety Report 7957265-9 (Version None)
Quarter: 2011Q4

REPORT INFORMATION
  Report Type: 
  Country: None (occurrence: None)
  Receive Date: 20111130
  Receipt Date: 20111121
  Transmission Date: 20120403
  Serious: Yes (Hospitalization)
  Sender: FDA-Public Use
  Company Number: 2010000096

PATIENT
  Age: 48 Year
  Sex: Female
  Weight: 62 kg

DRUGS (3)
  1. GDC-0941 (P13K INHIBITOR) CAPSULE [Suspect]
     Indication: NEOPLASM
     Dosage: 60 MG, UID/QD, ORAL
     Route: 048
     Dates: start: 20091109, end: 20091116
  2. TARCEVA [Suspect]
     Indication: NEOPLASM
     Dosage: 150 MG, UID/QD, ORAL
     Route: 048
     Dates: start: 20091110, end: 20091116
  3. DICLOFENAC [Concomitant]

REACTIONS (11)
  - COLITIS ULCERATIVE [None]
  - ILEUS [None]
  - PYREXIA [None]
  - INFLAMMATION [None]
  - CHILLS [None]
  - HYPOALBUMINAEMIA [None]
  - ABDOMINAL DISTENSION [None]
  - MALAISE [None]
  - HYPONATRAEMIA [None]
  - LYMPHOPENIA [None]
  - ABDOMINAL DISCOMFORT [None]
